FAERS Safety Report 5931390-6 (Version None)
Quarter: 2008Q4

REPORT INFORMATION
  Report Type: 
  Country: None (occurrence: None)
  Receive Date: 20081024
  Receipt Date: 20081024
  Transmission Date: 20090506
  Serious: Yes (Hospitalization)
  Sender: FDA-Public Use
  Company Number: None

PATIENT
  Age: 69 Year
  Sex: Male

DRUGS (1)
  1. METFORMIN HYDROCHLORIDE [Suspect]
     Dosage: 1000 MG TWICE A DAILY PO
     Route: 048

REACTIONS (9)
  - BLOOD POTASSIUM INCREASED [None]
  - CONTINUOUS HAEMODIAFILTRATION [None]
  - DYSARTHRIA [None]
  - HYPERGLYCAEMIA [None]
  - HYPOPHAGIA [None]
  - HYPOTENSION [None]
  - LACTIC ACIDOSIS [None]
  - NAIL DISCOLOURATION [None]
  - URINARY TRACT INFECTION [None]
